FAERS Safety Report 18116285 (Version 1)
Quarter: 2020Q3

REPORT INFORMATION
  Report Type: Spontaneous
  Country: US (occurrence: US)
  Receive Date: 20200805
  Receipt Date: 20200805
  Transmission Date: 20201103
  Serious: Yes (Other)
  Sender: FDA-Public Use
  Company Number: US-PURDUE-USA-2020-0153263

PATIENT
  Sex: Female

DRUGS (3)
  1. OXYCODONE HYDROCHLORIDE (SIMILAR TO NDA 22?272) [Suspect]
     Active Substance: OXYCODONE HYDROCHLORIDE
     Indication: PAIN
     Dosage: UNK
     Route: 048
  2. XANAX [Suspect]
     Active Substance: ALPRAZOLAM
     Indication: ANXIETY
     Dosage: (1MG) 1 TABLET, TID
     Route: 048
  3. OXYCONTIN [Suspect]
     Active Substance: OXYCODONE HYDROCHLORIDE
     Indication: PAIN
     Dosage: (30MG) 1 TABLET, PRN (6 TIMES A DAY)
     Route: 048

REACTIONS (9)
  - Weight decreased [Unknown]
  - Tinnitus [Unknown]
  - Muscle disorder [Unknown]
  - Memory impairment [Unknown]
  - Confusional state [Unknown]
  - Functional gastrointestinal disorder [Unknown]
  - Drug dependence [Unknown]
  - Surgery [Unknown]
  - Tremor [Unknown]
